FAERS Safety Report 7754655-4 (Version None)
Quarter: 2011Q3

REPORT INFORMATION
  Report Type: 
  Country: None (occurrence: None)
  Receive Date: 20110915
  Receipt Date: 20110712
  Transmission Date: 20111222
  Serious: No
  Sender: FDA-Public Use
  Company Number: US-ALLERGAN-1109413US

PATIENT
  Sex: Female

DRUGS (2)
  1. LUMIGAN [Suspect]
     Indication: GLAUCOMA
     Dosage: 2 GTT, UNK
  2. LUMIGAN [Suspect]
     Dosage: 2 GTT, QPM
     Route: 047
     Dates: start: 20101201

REACTIONS (1)
  - EYE PAIN [None]
